FAERS Safety Report 12087524 (Version 1)
Quarter: 2016Q1

REPORT INFORMATION
  Report Type: Spontaneous
  Country: US (occurrence: US)
  Receive Date: 20160217
  Receipt Date: 20160217
  Transmission Date: 20160526
  Serious: No
  Sender: FDA-Public Use
  Company Number: US-ALLERGAN-1515385US

PATIENT
  Age: 26 Year
  Sex: Female

DRUGS (1)
  1. RESTASIS [Suspect]
     Active Substance: CYCLOSPORINE
     Indication: KERATOMILEUSIS
     Dosage: 4 GTT, BID
     Route: 047

REACTIONS (1)
  - Foreign body sensation in eyes [Unknown]
